FAERS Safety Report 8825525 (Version 2)
Quarter: 2013Q1

REPORT INFORMATION
  Report Type: Spontaneous
  Country: US (occurrence: US)
  Receive Date: 20121004
  Receipt Date: 20130124
  Transmission Date: 20140127
  Serious: No
  Sender: FDA-Public Use
  Company Number: US-009507513-1210USA002112

PATIENT
  Sex: Female
  Weight: 79.37 kg

DRUGS (3)
  1. MIRALAX [Suspect]
     Indication: CONSTIPATION
     Dosage: 17 G, QD
     Route: 048
     Dates: start: 20120912, end: 20120916
  2. MIRALAX [Suspect]
     Indication: MEDICAL OBSERVATION
  3. AXERT [Concomitant]
     Indication: MIGRAINE
     Dosage: UNK, UNKNOWN

REACTIONS (4)
  - Headache [Recovered/Resolved]
  - Flatulence [Recovered/Resolved]
  - Gastrointestinal sounds abnormal [Not Recovered/Not Resolved]
  - Defaecation urgency [Not Recovered/Not Resolved]
